FAERS Safety Report 6607563-6 (Version None)
Quarter: 2010Q1

REPORT INFORMATION
  Report Type: 
  Country: None (occurrence: None)
  Receive Date: 20100301
  Receipt Date: 20100225
  Transmission Date: 20100710
  Serious: Yes (Life-Threatening, Hospitalization)
  Sender: FDA-Public Use
  Company Number: PHHY2010JP11129

PATIENT
  Sex: Male

DRUGS (15)
  1. DIOVAN [Suspect]
     Indication: HYPERTENSION
     Dosage: 80 MG, QD
     Route: 048
     Dates: start: 20071109, end: 20071226
  2. DIOVAN [Suspect]
     Dosage: 160 MG, QD
     Route: 048
     Dates: start: 20071227
  3. ARTIST [Concomitant]
     Indication: HYPERTENSION
     Dosage: 2.5MG,
     Route: 048
     Dates: start: 20071115
  4. ARTIST [Concomitant]
     Dosage: 5MG,
     Route: 048
  5. ARTIST [Concomitant]
     Dosage: 10MG
     Route: 048
  6. AMLODIPINE [Concomitant]
     Dosage: UNK
     Dates: start: 20080619
  7. AMLODIPINE [Concomitant]
     Indication: HYPERTENSION
  8. LANIRAPID [Concomitant]
     Dosage: UNK
     Route: 048
     Dates: start: 20071101
  9. ALDACTONE [Concomitant]
     Dosage: UNK
     Route: 048
     Dates: start: 20071101
  10. LASIX [Concomitant]
     Dosage: UNK
     Route: 048
     Dates: start: 20071101
  11. LIPITOR [Concomitant]
     Dosage: UNK
     Route: 048
     Dates: start: 20071108
  12. WARFARIN [Concomitant]
     Dosage: UNK
     Route: 048
     Dates: start: 20071101
  13. ALLOPURINOL [Concomitant]
     Dosage: UNK
     Route: 048
     Dates: start: 20080814
  14. ANCARON [Concomitant]
     Dosage: UNK
     Route: 048
     Dates: start: 20100205
  15. VASOLAN [Concomitant]
     Dosage: UNK
     Route: 048
     Dates: start: 20100107

REACTIONS (3)
  - IMPLANTABLE DEFIBRILLATOR INSERTION [None]
  - LOSS OF CONSCIOUSNESS [None]
  - VENTRICULAR TACHYCARDIA [None]
